FAERS Safety Report 12120957 (Version 1)
Quarter: 2016Q1

REPORT INFORMATION
  Report Type: Report from Study
  Country: JP (occurrence: JP)
  Receive Date: 20160226
  Receipt Date: 20160226
  Transmission Date: 20160526
  Serious: Yes (Hospitalization)
  Sender: FDA-Public Use
  Company Number: JP-ASTRAZENECA-2015SE35619

PATIENT
  Age: 26397 Day
  Sex: Female
  Weight: 50 kg

DRUGS (25)
  1. TAGRISSO [Suspect]
     Active Substance: OSIMERTINIB
     Indication: NON-SMALL CELL LUNG CANCER METASTATIC
     Route: 048
     Dates: start: 20150326, end: 20150408
  2. CODEINE PHOSPHATE [Concomitant]
     Active Substance: CODEINE PHOSPHATE
     Indication: NON-SMALL CELL LUNG CANCER METASTATIC
     Route: 048
     Dates: start: 20150421
  3. DEXAMETHASONE. [Concomitant]
     Active Substance: DEXAMETHASONE
     Dosage: AS REQUIRED
     Route: 002
     Dates: start: 20150323
  4. LIDOCAINE. [Concomitant]
     Active Substance: LIDOCAINE
     Indication: NON-SMALL CELL LUNG CANCER METASTATIC
  5. KETOPROFEN. [Concomitant]
     Active Substance: KETOPROFEN
     Route: 003
     Dates: start: 20150325
  6. UNASYN [Concomitant]
     Active Substance: AMPICILLIN SODIUM\SULBACTAM SODIUM
     Route: 042
     Dates: start: 20150410, end: 20150412
  7. GLUCOSE [Concomitant]
     Active Substance: DEXTROSE
     Route: 042
     Dates: start: 20150413, end: 20150415
  8. ACETAMINOPHEN. [Concomitant]
     Active Substance: ACETAMINOPHEN
     Route: 048
     Dates: start: 20150413, end: 20150421
  9. LIDOCAINE. [Concomitant]
     Active Substance: LIDOCAINE
     Indication: NON-SMALL CELL LUNG CANCER METASTATIC
  10. VITAMEDIN [Concomitant]
     Active Substance: CYANOCOBALAMIN\PYRIDOXINE HYDROCHLORIDE\THIAMINE
     Dosage: AS REQUIRED
     Route: 042
     Dates: start: 20150413, end: 20150415
  11. STUDY PROCEDURE [Suspect]
     Active Substance: INVESTIGATIONAL PRODUCT
     Indication: NON-SMALL CELL LUNG CANCER
     Route: 065
  12. MAGNESIUM OXIDE. [Concomitant]
     Active Substance: MAGNESIUM OXIDE
     Route: 048
     Dates: start: 20150304
  13. HACHIAZULE [Concomitant]
     Route: 051
     Dates: start: 20150413, end: 20150419
  14. MIYA-BM [Concomitant]
     Active Substance: CLOSTRIDIUM BUTYRICUM SPORES STRAIN M-55
     Route: 048
     Dates: start: 20150330, end: 20150410
  15. HACHIAZULE [Concomitant]
     Route: 051
     Dates: start: 20150401, end: 20150410
  16. DEXTROMETHORPHAN HYDROBROMIDE. [Concomitant]
     Active Substance: DEXTROMETHORPHAN HYDROBROMIDE
     Dosage: AS REQUIRED
     Route: 048
     Dates: start: 20150412, end: 20150416
  17. LACTEC [Concomitant]
     Active Substance: CALCIUM CHLORIDE ANHYDROUS\POTASSIUM CHLORIDE\SODIUM CHLORIDE\SODIUM LACTATE
     Route: 042
     Dates: start: 20150410, end: 20150410
  18. MINOFIT [Concomitant]
     Active Substance: CYSTEINE\GLYCINE\GLYCYRRHIZIN
     Route: 042
     Dates: start: 20150413, end: 20150415
  19. CLOBETASOL PROPIONATE. [Concomitant]
     Active Substance: CLOBETASOL PROPIONATE
     Dosage: TID
     Route: 003
     Dates: start: 2015
  20. HACHIAZULE [Concomitant]
     Route: 051
     Dates: start: 20150326, end: 20150326
  21. LOXOPROFEN SODIUM [Concomitant]
     Active Substance: LOXOPROFEN SODIUM
     Route: 048
     Dates: start: 20150408, end: 20150412
  22. LIDOCAINE. [Concomitant]
     Active Substance: LIDOCAINE
     Indication: NON-SMALL CELL LUNG CANCER METASTATIC
     Dosage: AS REQUIRED
     Route: 002
  23. SOLDEM [Concomitant]
     Active Substance: DEXTROSE\POTASSIUM CHLORIDE\SODIUM CHLORIDE\SODIUM LACTATE
     Route: 042
     Dates: start: 20150410, end: 20150413
  24. GLYCERIN. [Concomitant]
     Active Substance: GLYCERIN
     Indication: NON-SMALL CELL LUNG CANCER METASTATIC
     Dosage: AS REQUIRED
     Route: 002
     Dates: start: 20150413, end: 20150418
  25. LIDOCAINE. [Concomitant]
     Active Substance: LIDOCAINE
     Indication: NON-SMALL CELL LUNG CANCER METASTATIC
     Route: 042

REACTIONS (1)
  - Pyrexia [Recovered/Resolved]

NARRATIVE: CASE EVENT DATE: 20150408
